FAERS Safety Report 7599760-0 (Version None)
Quarter: 2011Q2

REPORT INFORMATION
  Report Type: 
  Country: None (occurrence: None)
  Receive Date: 20110629
  Receipt Date: 20110616
  Transmission Date: 20111010
  Serious: Yes (Death)
  Sender: FDA-Public Use
  Company Number: FK201101201

PATIENT
  Sex: Female

DRUGS (3)
  1. AVASTIN [Suspect]
  2. OXALIPLATIN [Suspect]
  3. XELODA [Suspect]

REACTIONS (1)
  - DEATH [None]
